FAERS Safety Report 6530509-6 (Version None)
Quarter: 2010Q1

REPORT INFORMATION
  Report Type: 
  Country: None (occurrence: None)
  Receive Date: 20100106
  Receipt Date: 20100106
  Transmission Date: 20100710
  Serious: No
  Sender: FDA-Public Use
  Company Number: None

PATIENT
  Age: 59 Year
  Sex: Female
  Weight: 63.6 kg

DRUGS (1)
  1. CHANTIX [Suspect]
     Indication: SMOKING CESSATION THERAPY
     Dosage: 1 MG 2 X A DAY ORAL
     Route: 048
     Dates: start: 20091119, end: 20091224

REACTIONS (7)
  - ABNORMAL BEHAVIOUR [None]
  - DRUG INEFFECTIVE [None]
  - IRRITABILITY [None]
  - MENOPAUSAL SYMPTOMS [None]
  - NAUSEA [None]
  - NICOTINE DEPENDENCE [None]
  - PERSONALITY CHANGE [None]
